FAERS Safety Report 7407022-7 (Version None)
Quarter: 2011Q2

REPORT INFORMATION
  Report Type: 
  Country: None (occurrence: None)
  Receive Date: 20110411
  Receipt Date: 20110405
  Transmission Date: 20111010
  Serious: No
  Sender: FDA-Public Use
  Company Number: US-PFIZER INC-2011075729

PATIENT
  Sex: Female
  Weight: 70.75 kg

DRUGS (3)
  1. LIPITOR [Suspect]
     Indication: BLOOD CHOLESTEROL INCREASED
     Dosage: 20 MG, 1X/DAY
     Route: 048
     Dates: start: 20030101
  2. SEROQUEL [Concomitant]
     Indication: DEPRESSION
     Dosage: 25 MG, 1X/DAY
  3. SERTRALINE [Concomitant]
     Indication: DEPRESSION
     Dosage: 100 MG, 1X/DAY

REACTIONS (2)
  - PAIN IN EXTREMITY [None]
  - INSOMNIA [None]
